FAERS Safety Report 4685528-1 (Version None)
Quarter: 2005Q2

REPORT INFORMATION
  Report Type: 
  Country: None (occurrence: None)
  Receive Date: 20050608
  Receipt Date: 20050531
  Transmission Date: 20051028
  Serious: Yes (Other)
  Sender: FDA-Public Use
  Company Number: 2005UW08375

PATIENT
  Sex: Male

DRUGS (2)
  1. PULMICORT [Suspect]
     Route: 055
  2. RHINOCORT [Suspect]
     Route: 045

REACTIONS (1)
  - ANAPHYLACTIC REACTION [None]
